FAERS Safety Report 6584472-2 (Version None)
Quarter: 2010Q1

REPORT INFORMATION
  Report Type: 
  Country: None (occurrence: None)
  Receive Date: 20100212
  Receipt Date: 20100212
  Transmission Date: 20100710
  Serious: Yes (Hospitalization)
  Sender: FDA-Public Use
  Company Number: None

PATIENT
  Age: 71 Year
  Sex: Male

DRUGS (1)
  1. NAPROXEN [Suspect]
     Indication: PAIN
     Dosage: 400 MG BID PO
     Route: 048
     Dates: start: 20090701, end: 20091026

REACTIONS (12)
  - CULTURE URINE POSITIVE [None]
  - DIARRHOEA [None]
  - ESCHERICHIA INFECTION [None]
  - GLYCOSURIA [None]
  - IGA NEPHROPATHY [None]
  - INTERCAPILLARY GLOMERULOSCLEROSIS [None]
  - KIDNEY FIBROSIS [None]
  - PROTEINURIA [None]
  - RED BLOOD CELLS URINE POSITIVE [None]
  - RENAL TUBULAR ATROPHY [None]
  - TUBULOINTERSTITIAL NEPHRITIS [None]
  - VOMITING [None]
